FAERS Safety Report 11713909 (Version 7)
Quarter: 2016Q4

REPORT INFORMATION
  Report Type: Spontaneous
  Country: US (occurrence: US)
  Receive Date: 20151109
  Receipt Date: 20161215
  Transmission Date: 20170206
  Serious: Yes (Congenital Anomaly, Other)
  Sender: FDA-Public Use
  Company Number: PHEH2015US022987

PATIENT
  Sex: Female

DRUGS (1)
  1. ZOFRAN [Suspect]
     Active Substance: ONDANSETRON HYDROCHLORIDE
     Indication: FOETAL EXPOSURE DURING PREGNANCY
     Dosage: MOTHER^S DOSE: 5 MG, UNK
     Route: 064

REACTIONS (21)
  - Multiple congenital abnormalities [Unknown]
  - Bronchitis [Unknown]
  - Heart disease congenital [Unknown]
  - Pain [Unknown]
  - Anhedonia [Unknown]
  - Congenital anomaly [Unknown]
  - Cardiac murmur [Unknown]
  - Dacryostenosis congenital [Unknown]
  - Bronchiolitis [Unknown]
  - Otitis media chronic [Unknown]
  - Feeding disorder [Unknown]
  - Scar [Unknown]
  - Cleft lip and palate [Unknown]
  - Ventricular septal defect [Unknown]
  - Dermoid cyst [Unknown]
  - Foetal exposure during pregnancy [Unknown]
  - Injury [Unknown]
  - Deafness [Unknown]
  - Gastrooesophageal reflux disease [Unknown]
  - Anxiety [Unknown]
  - Urinary tract infection [Unknown]
